FAERS Safety Report 17469449 (Version 2)
Quarter: 2020Q2

REPORT INFORMATION
  Report Type: Spontaneous
  Country: SE (occurrence: SE)
  Receive Date: 20200227
  Receipt Date: 20200520
  Transmission Date: 20200713
  Serious: Yes (Hospitalization)
  Sender: FDA-Public Use
  Company Number: SE-IGSA-SR10009929

PATIENT
  Age: 37 Year
  Sex: Female
  Weight: 98 kg

DRUGS (28)
  1. ACETYLCYSTEIN MEDA [Concomitant]
     Dosage: UNK
     Dates: start: 20181126
  2. VALACICLOVIR ACTAVIS [Concomitant]
     Active Substance: VALACYCLOVIR HYDROCHLORIDE
     Dosage: UNK
     Dates: start: 20200216
  3. GAMUNEX [Suspect]
     Active Substance: HUMAN IMMUNOGLOBULIN G
     Indication: IMMUNODEFICIENCY COMMON VARIABLE
     Dosage: 40 G, Q.3WK.
     Route: 042
     Dates: start: 20191209, end: 20200102
  4. ALVEDON [Concomitant]
     Active Substance: ACETAMINOPHEN
     Dosage: UNK
     Dates: start: 20170109
  5. CYMBALTA [Concomitant]
     Active Substance: DULOXETINE HYDROCHLORIDE
     Dosage: UNK
     Dates: start: 20180121
  6. FICORTRIL                          /00028601/ [Concomitant]
     Dosage: UNK
     Dates: start: 20180529
  7. OFTAGEL [Concomitant]
     Active Substance: CARBOMER
     Dosage: UNK
     Dates: start: 20180529
  8. IMIGRAN NOVUM [Concomitant]
     Active Substance: SUMATRIPTAN SUCCINATE
     Dosage: UNK
     Dates: start: 20200128
  9. CONCERTA [Concomitant]
     Active Substance: METHYLPHENIDATE HYDROCHLORIDE
     Dosage: UNK
     Dates: start: 20130117
  10. HYDROKORTISON ORION [Concomitant]
     Dosage: UNK
     Dates: start: 20200211
  11. OXYCODONE DEPOT ORION [Concomitant]
     Dosage: UNK
     Dates: start: 20200210
  12. NEZERIL [Concomitant]
     Dosage: UNK
     Dates: start: 20200213
  13. DEPO-PROVERA [Concomitant]
     Active Substance: MEDROXYPROGESTERONE ACETATE
     Dosage: UNK
     Dates: start: 20180611
  14. ATARAX [Concomitant]
     Active Substance: HYDROXYZINE HYDROCHLORIDE
     Dosage: UNK
     Dates: start: 20150611
  15. AERIUS                             /01009701/ [Concomitant]
     Active Substance: EBASTINE
     Dosage: UNK
     Dates: start: 20160428
  16. FORLAX [Concomitant]
     Active Substance: POLYETHYLENE GLYCOL 4000
     Dosage: UNK
     Dates: start: 20200210
  17. GAMUNEX [Suspect]
     Active Substance: HUMAN IMMUNOGLOBULIN G
     Dosage: 40 UNK, Q.3WK.
     Route: 042
     Dates: start: 20191118, end: 20191118
  18. MODIODAL [Concomitant]
     Active Substance: MODAFINIL
     Dosage: UNK
     Dates: start: 20160205
  19. DIAMOX                             /00016901/ [Concomitant]
     Active Substance: ACETAZOLAMIDE
     Dosage: UNK
     Dates: start: 20200206
  20. ZOPICLON GENERICS [Concomitant]
     Dosage: UNK
     Dates: start: 20200214
  21. GAMUNEX [Suspect]
     Active Substance: HUMAN IMMUNOGLOBULIN G
     Dosage: 40 G, Q.3WK.
     Route: 042
     Dates: start: 20200120, end: 20200120
  22. NAPROXEN                           /00256202/ [Concomitant]
     Active Substance: NAPROXEN SODIUM
     Dosage: UNK
     Dates: start: 20180903
  23. STILNOCT [Concomitant]
     Active Substance: ZOLPIDEM TARTRATE
     Dosage: UNK
     Dates: start: 20180421
  24. RITALIN [Concomitant]
     Active Substance: METHYLPHENIDATE HYDROCHLORIDE
     Dosage: UNK
     Dates: start: 20140225
  25. OXASCAND [Concomitant]
     Active Substance: OXAZEPAM
     Dosage: UNK
     Dates: start: 20151228
  26. AVAMYS [Concomitant]
     Active Substance: FLUTICASONE FUROATE
     Dosage: UNK
     Dates: start: 20171201
  27. SIDURO [Concomitant]
     Dosage: UNK
  28. OXYNORM [Concomitant]
     Active Substance: OXYCODONE HYDROCHLORIDE
     Dosage: UNK
     Dates: start: 20180529

REACTIONS (8)
  - Nausea [Recovered/Resolved]
  - Papilloedema [Recovered/Resolved]
  - Neck pain [Recovered/Resolved]
  - Tension headache [Recovered/Resolved]
  - Meningitis aseptic [Recovered/Resolved]
  - Dizziness [Recovered/Resolved]
  - Intracranial pressure increased [Recovered/Resolved]
  - Headache [Not Recovered/Not Resolved]

NARRATIVE: CASE EVENT DATE: 20200120
